FAERS Safety Report 4609217-4 (Version None)
Quarter: 2005Q1

REPORT INFORMATION
  Report Type: 
  Country: None (occurrence: None)
  Receive Date: 20050311
  Receipt Date: 20050224
  Transmission Date: 20050727
  Serious: Yes (Other)
  Sender: FDA-Public Use
  Company Number: 2005-DE-00759GD

PATIENT
  Age: 4 Year
  Sex: Male

DRUGS (6)
  1. ATROVENT [Suspect]
     Indication: BRONCHOSPASM
     Dosage: NR
  2. SALBUTAMOL (SALBUTAMOL) [Suspect]
     Indication: BRONCHOSPASM
     Dosage: NR
  3. EPINEPHRINE [Suspect]
     Indication: BRONCHOSPASM
     Dosage: NR, SC
     Route: 058
  4. MAGNESIUM SULFATE [Suspect]
     Indication: BRONCHOSPASM
     Dosage: NR,
  5. HELIOX (HELIOX) [Suspect]
     Indication: BRONCHOSPASM
     Dosage: NR
  6. CORTICOSTEROIDS (CORTICOSTEROIDS) [Suspect]
     Indication: BRONCHOSPASM
     Dosage: NR, IV
     Route: 042

REACTIONS (14)
  - ACUTE RESPIRATORY FAILURE [None]
  - AGITATION [None]
  - ATELECTASIS [None]
  - BLOOD PH DECREASED [None]
  - BRONCHOSPASM [None]
  - GENERAL PHYSICAL HEALTH DETERIORATION [None]
  - INAPPROPRIATE ANTIDIURETIC HORMONE SECRETION [None]
  - PNEUMONIA [None]
  - PNEUMONIA BACTERIAL [None]
  - RESTLESSNESS [None]
  - TACHYCARDIA [None]
  - TACHYPNOEA [None]
  - THERAPY NON-RESPONDER [None]
  - WHEEZING [None]
